FAERS Safety Report 11212774 (Version 1)
Quarter: 2015Q2

REPORT INFORMATION
  Report Type: Spontaneous
  Country: US (occurrence: US)
  Receive Date: 20150623
  Receipt Date: 20150623
  Transmission Date: 20150821
  Serious: No
  Sender: FDA-Public Use
  Company Number: US-PFIZER INC-2015204491

PATIENT
  Age: 70 Year
  Sex: Female
  Weight: 82.54 kg

DRUGS (1)
  1. LYRICA [Suspect]
     Active Substance: PREGABALIN
     Indication: NEURALGIA
     Dosage: 15 MG, 1X/DAY
     Dates: start: 20150616

REACTIONS (6)
  - Pain [Not Recovered/Not Resolved]
  - Drug ineffective [Unknown]
  - Mobility decreased [Unknown]
  - Spinal disorder [Unknown]
  - Glossodynia [Unknown]
  - Disease progression [Unknown]

NARRATIVE: CASE EVENT DATE: 201506
